FAERS Safety Report 13194870 (Version 1)
Quarter: 2017Q1

REPORT INFORMATION
  Report Type: Spontaneous
  Country: US (occurrence: US)
  Receive Date: 20170207
  Receipt Date: 20170207
  Transmission Date: 20170428
  Serious: Yes (Hospitalization)
  Sender: FDA-Public Use
  Company Number: US-TEVA-736978USA

PATIENT
  Age: 64 Year
  Sex: Male

DRUGS (1)
  1. ENOXAPARIN [Suspect]
     Active Substance: ENOXAPARIN
     Indication: COAGULOPATHY
     Dosage: 100 MG / 1 ML
     Route: 065

REACTIONS (5)
  - Incorrect product storage [Unknown]
  - Blood viscosity increased [Unknown]
  - Surgery [Unknown]
  - Drug ineffective [Unknown]
  - Wrong technique in product usage process [Unknown]
